FAERS Safety Report 6443844-7 (Version None)
Quarter: 2009Q4

REPORT INFORMATION
  Report Type: 
  Country: None (occurrence: None)
  Receive Date: 20091113
  Receipt Date: 20091028
  Transmission Date: 20100525
  Serious: Yes (Life-Threatening)
  Sender: FDA-Public Use
  Company Number: 426572

PATIENT
  Age: 70 Year
  Sex: Male
  Weight: 34 kg

DRUGS (14)
  1. CIPROFLOXACIN [Suspect]
     Indication: DRUG USE FOR UNKNOWN INDICATION
  2. METRONIDAZOLE [Suspect]
     Indication: DRUG USE FOR UNKNOWN INDICATION
     Dosage: 50 MG, 1 DAY, INTRAVENOUS
     Route: 042
  3. DEMEROL [Suspect]
     Indication: DRUG USE FOR UNKNOWN INDICATION
     Dosage: 50 MG, 1 DAY, INTRAVENOUS
     Route: 042
  4. WARFARIN SODIUM [Suspect]
     Indication: DRUG USE FOR UNKNOWN INDICATION
  5. ASPIRIN [Concomitant]
  6. FRESH FROZEN PLASMA [Concomitant]
  7. (NOVOLIN GE NPH /01322201/) [Concomitant]
  8. (CALCIUM) [Concomitant]
  9. DILTIAZEM [Concomitant]
  10. (GLICLAZIDE) [Concomitant]
  11. METFORMIN HCL [Concomitant]
  12. (METOPROLOL) [Concomitant]
  13. RAMIPRIL [Concomitant]
  14. VITAMIN A [Concomitant]

REACTIONS (4)
  - CHEST PAIN [None]
  - COLON GANGRENE [None]
  - CYANOSIS [None]
  - RASH MACULO-PAPULAR [None]
